APPROVED DRUG PRODUCT: KITABIS PAK
Active Ingredient: TOBRAMYCIN
Strength: 300MG/5ML
Dosage Form/Route: SOLUTION;INHALATION
Application: N205433 | Product #001 | TE Code: AN
Applicant: PULMOFLOW INC
Approved: Dec 2, 2014 | RLD: No | RS: No | Type: RX